FAERS Safety Report 4440446-9 (Version None)
Quarter: 2004Q3

REPORT INFORMATION
  Report Type: 
  Country: None (occurrence: None)
  Receive Date: 20040901
  Receipt Date: 20040901
  Transmission Date: 20050211
  Serious: No
  Sender: FDA-Public Use
  Company Number: None

PATIENT
  Age: 27 Year
  Sex: Female

DRUGS (2)
  1. VALPROIC ACID [Suspect]
     Dosage: 500 MG AM HS ORAL
     Route: 048
  2. RISPERIDONE [Suspect]
     Dosage: 3 MG AM HS ORAL
     Route: 048

REACTIONS (2)
  - NEUTROPHIL COUNT DECREASED [None]
  - WHITE BLOOD CELL COUNT DECREASED [None]
